FAERS Safety Report 7892678-5 (Version None)
Quarter: 2011Q4

REPORT INFORMATION
  Report Type: 
  Country: None (occurrence: None)
  Receive Date: 20111102
  Receipt Date: 20111019
  Transmission Date: 20120403
  Serious: Yes (Disabling, Other)
  Sender: FDA-Public Use
  Company Number: 2011MA012466

PATIENT
  Age: 65 Year
  Sex: Female

DRUGS (12)
  1. ATORVASTATIN [Concomitant]
  2. SITAGLIPTIN [Concomitant]
  3. ALENDRONIC ACID [Concomitant]
  4. MIRTAZAPINE [Suspect]
     Indication: PANIC ATTACK
     Dosage: 45 MG;PO
     Route: 048
     Dates: start: 20080601, end: 20090801
  5. MIRTAZAPINE [Suspect]
     Indication: DEPRESSION
     Dosage: 45 MG;PO
     Route: 048
     Dates: start: 20080601, end: 20090801
  6. MIRTAZAPINE [Suspect]
     Indication: ANXIETY
     Dosage: 45 MG;PO
     Route: 048
     Dates: start: 20080601, end: 20090801
  7. IRBESARTAN [Concomitant]
  8. FOLIC ACID [Concomitant]
  9. METFORMIN HCL [Concomitant]
  10. MIRTAZAPINE [Suspect]
     Indication: PANIC ATTACK
     Dosage: 45 MG;PO
     Route: 048
     Dates: start: 20080601, end: 20090801
  11. MIRTAZAPINE [Suspect]
     Indication: DEPRESSION
     Dosage: 45 MG;PO
     Route: 048
     Dates: start: 20080601, end: 20090801
  12. MIRTAZAPINE [Suspect]
     Indication: ANXIETY
     Dosage: 45 MG;PO
     Route: 048
     Dates: start: 20080601, end: 20090801

REACTIONS (3)
  - PARKINSON'S DISEASE [None]
  - TREMOR [None]
  - ACTIVITIES OF DAILY LIVING IMPAIRED [None]
